FAERS Safety Report 15277253 (Version 1)
Quarter: 2018Q3

REPORT INFORMATION
  Report Type: Spontaneous
  Country: US (occurrence: US)
  Receive Date: 20180814
  Receipt Date: 20180814
  Transmission Date: 20181010
  Serious: Yes (Other)
  Sender: FDA-Public Use
  Company Number: US-ASTRAZENECA-2018SF02044

PATIENT
  Age: 61 Year
  Sex: Male
  Weight: 90.3 kg

DRUGS (4)
  1. MOVANTIK [Suspect]
     Active Substance: NALOXEGOL OXALATE
     Indication: CONSTIPATION
     Dosage: 1 PILL EVERY 2 TO 3 DAYS
     Route: 048
     Dates: start: 2015, end: 201707
  2. MOVANTIK [Suspect]
     Active Substance: NALOXEGOL OXALATE
     Indication: CONSTIPATION
     Route: 048
  3. MORPHINE [Concomitant]
     Active Substance: MORPHINE
     Indication: PAIN
     Route: 065
  4. CBD OIL PLUS [Concomitant]
     Indication: BACK PAIN
     Route: 065

REACTIONS (5)
  - Radiation associated pain [Not Recovered/Not Resolved]
  - Intentional product misuse [Recovered/Resolved]
  - Non-small cell lung cancer [Not Recovered/Not Resolved]
  - Constipation [Not Recovered/Not Resolved]
  - Back pain [Not Recovered/Not Resolved]

NARRATIVE: CASE EVENT DATE: 2015
